FAERS Safety Report 16634402 (Version 1)
Quarter: 2019Q3

REPORT INFORMATION
  Report Type: Report from Study
  Country: DE (occurrence: DE)
  Receive Date: 20190726
  Receipt Date: 20190726
  Transmission Date: 20191004
  Serious: Yes (Hospitalization, Other)
  Sender: FDA-Public Use
  Company Number: DE-ROCHE-2362486

PATIENT

DRUGS (1)
  1. BEVACIZUMAB. [Suspect]
     Active Substance: BEVACIZUMAB
     Indication: OVARIAN CANCER RECURRENT
     Route: 065

REACTIONS (7)
  - Small intestinal perforation [Unknown]
  - Proteinuria [Unknown]
  - Nephrotic syndrome [Unknown]
  - Infection [Unknown]
  - Gastrointestinal toxicity [Unknown]
  - Hypertension [Unknown]
  - Intestinal obstruction [Unknown]
